FAERS Safety Report 7736692-9 (Version None)
Quarter: 2011Q3

REPORT INFORMATION
  Report Type: 
  Country: None (occurrence: None)
  Receive Date: 20110908
  Receipt Date: 20110831
  Transmission Date: 20111222
  Serious: Yes (Other)
  Sender: FDA-Public Use
  Company Number: US-JNJFOC-20110707129

PATIENT
  Sex: Female
  Weight: 101.61 kg

DRUGS (6)
  1. TYLENOL-500 [Concomitant]
     Indication: PREMEDICATION
     Route: 048
     Dates: start: 20110624
  2. REMICADE [Suspect]
     Route: 042
     Dates: start: 20110624
  3. BENADRYL [Concomitant]
     Indication: PREMEDICATION
     Route: 048
     Dates: start: 20110624
  4. REMICADE [Suspect]
     Indication: PSORIATIC ARTHROPATHY
     Dosage: 3 INFUSIONS ON UNSPECIFIED DATES
     Route: 042
  5. REMICADE [Suspect]
     Route: 042
     Dates: start: 20110624
  6. REMICADE [Suspect]
     Indication: PSORIASIS
     Dosage: 3 INFUSIONS ON UNSPECIFIED DATES
     Route: 042

REACTIONS (4)
  - HYPERTENSION [None]
  - FLUSHING [None]
  - HEART RATE INCREASED [None]
  - INFUSION RELATED REACTION [None]
